FAERS Safety Report 12084528 (Version 8)
Quarter: 2017Q2

REPORT INFORMATION
  Report Type: Spontaneous
  Country: CA (occurrence: CA)
  Receive Date: 20160217
  Receipt Date: 20170608
  Transmission Date: 20170829
  Serious: Yes (Hospitalization)
  Sender: FDA-Public Use
  Company Number: CA-PFIZER INC-2016081318

PATIENT
  Age: 87 Year
  Sex: Male

DRUGS (12)
  1. FENTANYL SANDOZ [Concomitant]
     Active Substance: FENTANYL
     Dosage: UNK, CYCLIC (FENTANYL 25 MCG/HR PATCH, APPLY PATCH EVERY 72 HOURS)
  2. APO-GABAPENTIN [Concomitant]
     Active Substance: GABAPENTIN
     Dosage: 300 MG, 2X/DAY
  3. RATIO-OXYCOCET [Concomitant]
     Active Substance: ACETAMINOPHEN\OXYCODONE HYDROCHLORIDE
     Dosage: OXYCODONE HYDROCHLORIDE, PARACETAMOL 5MG/325MG TABLET: 1 OR 2 TABS 3 TIMES A DAY AS NEEDED
  4. TYLENOL WITH CODEINE [Concomitant]
     Active Substance: ACETAMINOPHEN\CODEINE PHOSPHATE
     Dosage: 1-3 TABLETS, 1X/DAY AS NEEDED
  5. PREGABALIN. [Concomitant]
     Active Substance: PREGABALIN
     Indication: RHEUMATOID ARTHRITIS
     Dosage: 50 MG, 2X/DAY
  6. DEPO-MEDROL [Concomitant]
     Active Substance: METHYLPREDNISOLONE ACETATE
     Indication: RHEUMATOID ARTHRITIS
     Dosage: 80 MG/ML
  7. ALLOPURINOL. [Concomitant]
     Active Substance: ALLOPURINOL
     Dosage: 100 MG, 1X/DAY
  8. RATIO-FENTANYL [Concomitant]
     Active Substance: FENTANYL
     Dosage: UNK UNK, CYCLIC, 12 MCG/HR PATCH (APPLY PATCH EVERY 72 HOURS)
  9. XELJANZ [Suspect]
     Active Substance: TOFACITINIB CITRATE
     Indication: RHEUMATOID ARTHRITIS
     Dosage: 5 MG, 1X/DAY
     Route: 048
     Dates: start: 20150715
  10. GABAPENTIN. [Concomitant]
     Active Substance: GABAPENTIN
     Indication: RHEUMATOID ARTHRITIS
     Dosage: 300 MG, 2X/DAY
  11. COLCHICINE. [Concomitant]
     Active Substance: COLCHICINE
     Dosage: 0.6 MG, 1X/DAY AS NEEDED
  12. ACETAMINOPHEN. [Concomitant]
     Active Substance: ACETAMINOPHEN
     Dosage: 975 MG, 4X/DAY

REACTIONS (4)
  - Gout [Recovering/Resolving]
  - Pain [Unknown]
  - Infection [Recovered/Resolved]
  - Condition aggravated [Recovering/Resolving]
